FAERS Safety Report 18647855 (Version 1)
Quarter: 2020Q4

REPORT INFORMATION
  Report Type: Spontaneous
  Country: US (occurrence: US)
  Receive Date: 20201221
  Receipt Date: 20201221
  Transmission Date: 20210114
  Serious: No
  Sender: FDA-Public Use
  Company Number: None

PATIENT
  Age: 51 Year
  Sex: Female
  Weight: 102.15 kg

DRUGS (14)
  1. VITAMIN B-12 1000MCG/15MG, ORAL [Concomitant]
  2. MEGESTROL [Suspect]
     Active Substance: MEGESTROL
     Indication: ENDOMETRIAL NEOPLASM
     Route: 048
     Dates: start: 20201124
  3. LINZESS 290MCG, ORAL [Concomitant]
  4. OMEPRAZOLE 40MG, ORAL [Concomitant]
  5. TRAMADOL HCL 50MG, ORAL [Concomitant]
  6. TRINTELLIX 10MG, ORAL [Concomitant]
  7. METFORMIN HCL ER 1000MG, ORAL [Concomitant]
  8. MULTIVITAMIN, ORAL [Concomitant]
  9. TOPIRAMATE ER 100MG, ORAL [Concomitant]
  10. PRAVASTATIN SODIUM 10MG, ORAL [Concomitant]
  11. CALCIUM CITRATE 150MG, ORAL [Concomitant]
  12. LEVOTHYROXINE SODIUM 50MCG, ORAL [Concomitant]
  13. TIZANIDINE HCL 4MG, ORAL [Concomitant]
  14. TRADJENTA 5MG, ORAL [Concomitant]

REACTIONS (1)
  - Nausea [None]

NARRATIVE: CASE EVENT DATE: 20201221
